FAERS Safety Report 14922347 (Version 2)
Quarter: 2018Q2

REPORT INFORMATION
  Report Type: Spontaneous
  Country: BR (occurrence: BR)
  Receive Date: 20180522
  Receipt Date: 20180523
  Transmission Date: 20180711
  Serious: Yes (Other)
  Sender: FDA-Public Use
  Company Number: BR-ABBVIE-18P-020-2362046-00

PATIENT
  Age: 67 Year
  Sex: Female
  Weight: 67 kg

DRUGS (8)
  1. DICETEL [Suspect]
     Active Substance: PINAVERIUM BROMIDE
     Indication: ABDOMINAL PAIN UPPER
     Route: 048
     Dates: start: 201801, end: 20180131
  2. SYNTHROID [Suspect]
     Active Substance: LEVOTHYROXINE SODIUM
     Indication: THROAT CANCER
     Dosage: UNSPECIFIED FORM STRENGTH, BUT HIGHER THAN 100MCG
     Route: 065
     Dates: start: 2000
  3. SYNTHROID [Suspect]
     Active Substance: LEVOTHYROXINE SODIUM
     Indication: HORMONE REPLACEMENT THERAPY
     Dosage: MORNING / IN FASTING/ 1 HOUR AFTER OMEPRAZOLE INTAKE
     Route: 065
  4. OMEPRAZOLE. [Concomitant]
     Active Substance: OMEPRAZOLE
     Indication: ABDOMINAL DISCOMFORT
     Dosage: IN THE MORNING/ 1 HOUR BEFORE SYNTHROID USE
  5. AAS [Concomitant]
     Active Substance: ASPIRIN
     Indication: ANTICOAGULANT THERAPY
     Dosage: AFTER LOSARTAN (IN THE MORNING) OR AFTER LUNCH
  6. DIAZEPAM. [Concomitant]
     Active Substance: DIAZEPAM
     Indication: DEPRESSION
     Dosage: AT 07:30 P.M.
  7. ATENOLOL. [Concomitant]
     Active Substance: ATENOLOL
     Indication: BLOOD PRESSURE ABNORMAL
     Dosage: 08:00 AM/08:00 PM
  8. LOSARTAN. [Concomitant]
     Active Substance: LOSARTAN
     Indication: BLOOD PRESSURE ABNORMAL
     Dosage: 11:00 AM

REACTIONS (8)
  - Dermatitis allergic [Recovering/Resolving]
  - Throat tightness [Recovered/Resolved]
  - Pruritus [Recovering/Resolving]
  - Swollen tongue [Recovered/Resolved]
  - Hypersensitivity [Unknown]
  - Diarrhoea [Recovered/Resolved]
  - Off label use [Recovered/Resolved]
  - Headache [Recovered/Resolved]

NARRATIVE: CASE EVENT DATE: 201801
